FAERS Safety Report 21397341 (Version 2)
Quarter: 2022Q4

REPORT INFORMATION
  Report Type: Report from Study
  Country: KR (occurrence: KR)
  Receive Date: 20220930
  Receipt Date: 20221005
  Transmission Date: 20230113
  Serious: Yes (Death)
  Sender: FDA-Public Use
  Company Number: KR-PFIZER INC-PV202200073390

PATIENT
  Age: 89 Year
  Sex: Female
  Weight: 35 kg

DRUGS (4)
  1. DACOMITINIB [Suspect]
     Active Substance: DACOMITINIB
     Indication: Non-small cell lung cancer
     Dosage: 45 MG, 1X/DAY
     Route: 048
     Dates: start: 20220804
  2. MEGACE F [Concomitant]
     Indication: Non-small cell lung cancer
     Dosage: UNK
     Route: 048
     Dates: start: 20220804
  3. TANTUM [BENZYDAMINE HYDROCHLORIDE] [Concomitant]
     Indication: Non-small cell lung cancer
     Dosage: UNK
     Route: 048
     Dates: start: 20220804
  4. LOPAINE [Concomitant]
     Indication: Diarrhoea
     Dosage: UNK
     Route: 048
     Dates: start: 20220804

REACTIONS (1)
  - Sudden cardiac death [Fatal]

NARRATIVE: CASE EVENT DATE: 20220906
